FAERS Safety Report 11037687 (Version 2)
Quarter: 2017Q3

REPORT INFORMATION
  Report Type: Spontaneous
  Country: ES (occurrence: ES)
  Receive Date: 20150416
  Receipt Date: 20170914
  Transmission Date: 20171127
  Serious: Yes (Other)
  Sender: FDA-Public Use
  Company Number: ES-SUN PHARMACEUTICAL INDUSTRIES LTD-2015R1-95343

PATIENT
  Age: 67 Year
  Sex: Male

DRUGS (3)
  1. PREDNISONE. [Suspect]
     Active Substance: PREDNISONE
     Dosage: 7.5 MG, DAILY
     Route: 065
  2. PREDNISONE. [Suspect]
     Active Substance: PREDNISONE
     Indication: ANTISYNTHETASE SYNDROME
     Dosage: UNK
     Route: 065
  3. PREDNISONE. [Suspect]
     Active Substance: PREDNISONE
     Indication: ANTISYNTHETASE SYNDROME
     Dosage: 30 MG, DAILY
     Route: 065

REACTIONS (2)
  - Kaposi^s sarcoma [Unknown]
  - Human herpesvirus 8 infection [Unknown]
